FAERS Safety Report 24533220 (Version 4)
Quarter: 2025Q2

REPORT INFORMATION
  Report Type: Spontaneous
  Country: GB (occurrence: GB)
  Receive Date: 20241022
  Receipt Date: 20250610
  Transmission Date: 20250717
  Serious: Yes (Hospitalization, Other)
  Sender: MYLAN
  Company Number: GB-MYLANLABS-2024M1095581

PATIENT
  Age: 61 Year
  Sex: Male

DRUGS (64)
  1. SERTRALINE [Suspect]
     Active Substance: SERTRALINE HYDROCHLORIDE
     Indication: Depressive symptom
     Route: 065
  2. SERTRALINE [Suspect]
     Active Substance: SERTRALINE HYDROCHLORIDE
  3. SERTRALINE [Suspect]
     Active Substance: SERTRALINE HYDROCHLORIDE
  4. SERTRALINE [Suspect]
     Active Substance: SERTRALINE HYDROCHLORIDE
     Route: 065
  5. SERTRALINE [Suspect]
     Active Substance: SERTRALINE HYDROCHLORIDE
     Route: 065
  6. SERTRALINE [Suspect]
     Active Substance: SERTRALINE HYDROCHLORIDE
  7. SERTRALINE [Suspect]
     Active Substance: SERTRALINE HYDROCHLORIDE
  8. SERTRALINE [Suspect]
     Active Substance: SERTRALINE HYDROCHLORIDE
     Route: 065
  9. OLANZAPINE [Suspect]
     Active Substance: OLANZAPINE
     Indication: Psychotic disorder
  10. OLANZAPINE [Suspect]
     Active Substance: OLANZAPINE
     Route: 065
  11. OLANZAPINE [Suspect]
     Active Substance: OLANZAPINE
     Route: 065
  12. OLANZAPINE [Suspect]
     Active Substance: OLANZAPINE
  13. QUETIAPINE [Suspect]
     Active Substance: QUETIAPINE
     Indication: Psychotic symptom
     Route: 065
  14. QUETIAPINE [Suspect]
     Active Substance: QUETIAPINE
     Indication: Depressive symptom
  15. QUETIAPINE [Suspect]
     Active Substance: QUETIAPINE
  16. QUETIAPINE [Suspect]
     Active Substance: QUETIAPINE
     Route: 065
  17. QUETIAPINE [Suspect]
     Active Substance: QUETIAPINE
     Route: 065
  18. QUETIAPINE [Suspect]
     Active Substance: QUETIAPINE
  19. QUETIAPINE [Suspect]
     Active Substance: QUETIAPINE
  20. QUETIAPINE [Suspect]
     Active Substance: QUETIAPINE
     Route: 065
  21. PREGABALIN [Suspect]
     Active Substance: PREGABALIN
     Indication: Anxiety
  22. PREGABALIN [Suspect]
     Active Substance: PREGABALIN
     Indication: Emotional distress
     Route: 065
  23. PREGABALIN [Suspect]
     Active Substance: PREGABALIN
     Route: 065
  24. PREGABALIN [Suspect]
     Active Substance: PREGABALIN
  25. RISPERIDONE [Suspect]
     Active Substance: RISPERIDONE
     Indication: Psychotic disorder
  26. RISPERIDONE [Suspect]
     Active Substance: RISPERIDONE
     Route: 065
  27. RISPERIDONE [Suspect]
     Active Substance: RISPERIDONE
     Route: 065
  28. RISPERIDONE [Suspect]
     Active Substance: RISPERIDONE
  29. PROCYCLIDINE [Suspect]
     Active Substance: PROCYCLIDINE
     Indication: Akathisia
  30. PROCYCLIDINE [Suspect]
     Active Substance: PROCYCLIDINE
     Indication: Dystonia
     Route: 065
  31. PROCYCLIDINE [Suspect]
     Active Substance: PROCYCLIDINE
     Indication: Psychotic disorder
     Route: 065
  32. PROCYCLIDINE [Suspect]
     Active Substance: PROCYCLIDINE
  33. ARIPIPRAZOLE [Suspect]
     Active Substance: ARIPIPRAZOLE
     Indication: Psychotic disorder
  34. ARIPIPRAZOLE [Suspect]
     Active Substance: ARIPIPRAZOLE
     Route: 065
  35. ARIPIPRAZOLE [Suspect]
     Active Substance: ARIPIPRAZOLE
     Route: 065
  36. ARIPIPRAZOLE [Suspect]
     Active Substance: ARIPIPRAZOLE
  37. LORAZEPAM [Concomitant]
     Active Substance: LORAZEPAM
     Indication: Catatonia
  38. LORAZEPAM [Concomitant]
     Active Substance: LORAZEPAM
     Route: 065
  39. LORAZEPAM [Concomitant]
     Active Substance: LORAZEPAM
     Route: 065
  40. LORAZEPAM [Concomitant]
     Active Substance: LORAZEPAM
  41. LEVOTHYROXINE SODIUM [Concomitant]
     Active Substance: LEVOTHYROXINE SODIUM
     Indication: Hypothyroidism
  42. LEVOTHYROXINE SODIUM [Concomitant]
     Active Substance: LEVOTHYROXINE SODIUM
     Route: 065
  43. LEVOTHYROXINE SODIUM [Concomitant]
     Active Substance: LEVOTHYROXINE SODIUM
     Route: 065
  44. LEVOTHYROXINE SODIUM [Concomitant]
     Active Substance: LEVOTHYROXINE SODIUM
  45. CHOLECALCIFEROL [Concomitant]
     Active Substance: CHOLECALCIFEROL
     Indication: Vitamin D deficiency
  46. CHOLECALCIFEROL [Concomitant]
     Active Substance: CHOLECALCIFEROL
     Route: 065
  47. CHOLECALCIFEROL [Concomitant]
     Active Substance: CHOLECALCIFEROL
     Route: 065
  48. CHOLECALCIFEROL [Concomitant]
     Active Substance: CHOLECALCIFEROL
  49. DIAZEPAM [Concomitant]
     Active Substance: DIAZEPAM
     Indication: Clonic convulsion
  50. DIAZEPAM [Concomitant]
     Active Substance: DIAZEPAM
     Route: 054
  51. DIAZEPAM [Concomitant]
     Active Substance: DIAZEPAM
     Route: 054
  52. DIAZEPAM [Concomitant]
     Active Substance: DIAZEPAM
  53. SINEMET [Concomitant]
     Active Substance: CARBIDOPA\LEVODOPA
     Indication: Parkinson^s disease
  54. SINEMET [Concomitant]
     Active Substance: CARBIDOPA\LEVODOPA
     Indication: Dementia with Lewy bodies
     Route: 065
  55. SINEMET [Concomitant]
     Active Substance: CARBIDOPA\LEVODOPA
     Route: 065
  56. SINEMET [Concomitant]
     Active Substance: CARBIDOPA\LEVODOPA
  57. RIVASTIGMINE [Concomitant]
     Active Substance: RIVASTIGMINE
     Indication: Catatonia
  58. RIVASTIGMINE [Concomitant]
     Active Substance: RIVASTIGMINE
     Indication: Dementia with Lewy bodies
     Route: 065
  59. RIVASTIGMINE [Concomitant]
     Active Substance: RIVASTIGMINE
     Indication: Parkinson^s disease
     Route: 065
  60. RIVASTIGMINE [Concomitant]
     Active Substance: RIVASTIGMINE
  61. PROCYCLIDINE [Concomitant]
     Active Substance: PROCYCLIDINE
  62. PROCYCLIDINE [Concomitant]
     Active Substance: PROCYCLIDINE
     Route: 065
  63. PROCYCLIDINE [Concomitant]
     Active Substance: PROCYCLIDINE
     Route: 065
  64. PROCYCLIDINE [Concomitant]
     Active Substance: PROCYCLIDINE

REACTIONS (8)
  - Extrapyramidal disorder [Unknown]
  - Akathisia [Unknown]
  - Dystonia [Unknown]
  - Drug ineffective [Unknown]
  - Gastrointestinal disorder [Unknown]
  - Dizziness [Unknown]
  - Dry mouth [Unknown]
  - Sexual dysfunction [Unknown]

NARRATIVE: CASE EVENT DATE: 20210101
